FAERS Safety Report 18341102 (Version 1)
Quarter: 2020Q4

REPORT INFORMATION
  Report Type: Spontaneous
  Country: US (occurrence: US)
  Receive Date: 20201003
  Receipt Date: 20201003
  Transmission Date: 20210113
  Serious: Yes (Other)
  Sender: FDA-Public Use
  Company Number: US-009507513-2010USA000068

PATIENT
  Age: 29 Year
  Sex: Male

DRUGS (29)
  1. IBUPROFEN. [Concomitant]
     Active Substance: IBUPROFEN
     Dosage: 600 MILLIGRAM, ONCE ON DAY 1
  2. DESMOPRESSIN [Concomitant]
     Active Substance: DESMOPRESSIN
     Dosage: 20 MICROGRAM, ONCE ON DAY 2
  3. SODIUM POLYSTYRENE SULFONATE. [Concomitant]
     Active Substance: SODIUM POLYSTYRENE SULFONATE
     Dosage: 15 GRAM, MULTIPLE
  4. ANGIOTENSIN II [Concomitant]
     Active Substance: ANGIOTENSIN II
     Dosage: UNK, CONTINUOUS FROM DAY 1-3
     Route: 042
  5. HEPARIN [Concomitant]
     Active Substance: HEPARIN SODIUM
     Dosage: 5000 UNITS, TWICE A DAY FROM DAY 1-2
     Route: 058
  6. ELECTROLYTES (UNSPECIFIED) (+) SODIUM LACTATE [Concomitant]
     Active Substance: ELECTROLYTES NOS\SODIUM LACTATE
     Dosage: UNK, MULTIPLE BOLUSES
  7. PHENYLEPHRINE [Concomitant]
     Active Substance: PHENYLEPHRINE HYDROCHLORIDE
     Dosage: DRIP CONTINUOUS FROM DAY 1-2
  8. MIDODRINE HYDROCHLORIDE. [Concomitant]
     Active Substance: MIDODRINE HYDROCHLORIDE
     Dosage: 5 MILLIGRAM, 3 TIMES A DAY FROM DAY 1-3
  9. SODIUM BICARBONATE. [Concomitant]
     Active Substance: SODIUM BICARBONATE
     Dosage: UNK, BOLUSES MULTIPLE
     Route: 042
  10. SODIUM CHLORIDE. [Concomitant]
     Active Substance: SODIUM CHLORIDE
     Dosage: UNK, BOLUSES MULTIPLE
     Route: 042
  11. LINEZOLID. [Concomitant]
     Active Substance: LINEZOLID
     Dosage: 600 MILLIGRAM, ONCE ON DAY 1
     Route: 042
  12. VASOPRESSIN. [Concomitant]
     Active Substance: VASOPRESSIN
     Dosage: UNK, INFUSION CONTINUOUS FROM DAY 1-3
  13. MEROPENEM. [Concomitant]
     Active Substance: MEROPENEM
     Dosage: 500 MILLIGRAM, ONCE DAILY FROM DAY 1-3
  14. MAGNESIUM SULFATE. [Concomitant]
     Active Substance: MAGNESIUM SULFATE
     Dosage: 1 GRAM, ONCE ON DAY 3
  15. ASPIRIN. [Concomitant]
     Active Substance: ASPIRIN
     Dosage: 325 MG, ONCE ON DAY 1
  16. NOREPINEPHRINE. [Concomitant]
     Active Substance: NOREPINEPHRINE
     Dosage: 1.2MCG/KG/MIN, CONTINUOUS FROM DAY 1-3
  17. DEXTROSE. [Concomitant]
     Active Substance: DEXTROSE
     Dosage: UNK, INFUSION AND PUSHES MULTIPLE
  18. SODIUM BICARBONATE. [Concomitant]
     Active Substance: SODIUM BICARBONATE
     Dosage: 1950 MILLIGRAM, TWICE A DAY FROM DAY 1-3
     Route: 048
  19. PROMETHAZINE [Concomitant]
     Active Substance: PROMETHAZINE HYDROCHLORIDE
     Dosage: 12.5 MILLIGRAM, ONCE ON DAY 1
     Route: 030
  20. IODIXANOL. [Concomitant]
     Active Substance: IODIXANOL
     Dosage: 320 MILLIGRAM, ONCE ON DAY 1
  21. ELECTROLYTES (UNSPECIFIED) (+) SODIUM LACTATE [Concomitant]
     Active Substance: ELECTROLYTES NOS\SODIUM LACTATE
     Dosage: 20 MILLIGRAM/KILOGRAM, 2 BOLUSES
  22. CUBICIN [Suspect]
     Active Substance: DAPTOMYCIN
     Indication: BACTERAEMIA
     Dosage: 6 MILLIGRAM/KILOGRAM, QOD
  23. ALBUMIN HUMAN [Concomitant]
     Active Substance: ALBUMIN HUMAN
     Dosage: 25 GRAM, ONCE ON DAY 1
  24. FENTANYL. [Concomitant]
     Active Substance: FENTANYL
     Dosage: 50 MICROGRAM, ONCE ON DAY 1
     Route: 042
  25. CEFEPIME [Concomitant]
     Active Substance: CEFEPIME HYDROCHLORIDE
     Dosage: 1 GRAM, ONCE ON DAY 1
  26. HYDROCORTISONE. [Concomitant]
     Active Substance: HYDROCORTISONE
     Dosage: 100 MILLIGRAM, ONCE ON DAY 2
     Route: 042
  27. CUBICIN [Suspect]
     Active Substance: DAPTOMYCIN
     Dosage: 6 MILLIGRAM/KILOGRAM, QOD
  28. ACETAMINOPHEN. [Concomitant]
     Active Substance: ACETAMINOPHEN
     Dosage: 1 GRAM, ONCE ON DAY 1
     Route: 042
  29. DEXMEDETOMIDINE. [Concomitant]
     Active Substance: DEXMEDETOMIDINE
     Dosage: UNK, CONTINUOUS FROM DAY 2-3

REACTIONS (1)
  - Blood creatine phosphokinase increased [Unknown]
